FAERS Safety Report 9054755 (Version 1)
Quarter: 2013Q1

REPORT INFORMATION
  Report Type: Spontaneous
  Country: FR (occurrence: FR)
  Receive Date: 20130208
  Receipt Date: 20130208
  Transmission Date: 20140127
  Serious: Yes (Hospitalization, Other)
  Sender: FDA-Public Use
  Company Number: FR-PFIZER INC-2013041509

PATIENT
  Age: 38 Year
  Sex: Male

DRUGS (3)
  1. SALAZOPYRINE [Suspect]
     Dosage: 2 G, 1X/DAY
     Route: 048
     Dates: start: 20121121, end: 20121129
  2. HOMEOPATICS NOS [Concomitant]
     Indication: PSORIATIC ARTHROPATHY
  3. SPECIAFOLDINE [Concomitant]
     Indication: PSORIATIC ARTHROPATHY
     Dosage: 5 MG, WEEKLY

REACTIONS (9)
  - Hepatocellular injury [Recovering/Resolving]
  - Cholestasis [Recovering/Resolving]
  - Back pain [Recovering/Resolving]
  - Arthralgia [Recovering/Resolving]
  - Pyrexia [Recovering/Resolving]
  - Rash pustular [Recovering/Resolving]
  - Conjunctivitis [Recovering/Resolving]
  - Rash vesicular [Unknown]
  - Jaundice [Recovering/Resolving]
